FAERS Safety Report 10150322 (Version 1)
Quarter: 2014Q2

REPORT INFORMATION
  Report Type: Spontaneous
  Country: GB (occurrence: GB)
  Receive Date: 20140502
  Receipt Date: 20140502
  Transmission Date: 20141212
  Serious: Yes (Life-Threatening)
  Sender: FDA-Public Use
  Company Number: GB-B.I. PHARMACEUTICALS,INC./RIDGEFIELD-2014-BI-19548UK

PATIENT
  Age: 10 Year
  Sex: Female
  Weight: 49 kg

DRUGS (4)
  1. CLONIDINE [Suspect]
     Indication: ATTENTION DEFICIT/HYPERACTIVITY DISORDER
     Dosage: 75 MCG
     Route: 048
     Dates: start: 20140305, end: 20140305
  2. CLONIDINE [Suspect]
     Indication: TOURETTE^S DISORDER
  3. PIZOTIFEN [Suspect]
     Indication: MIGRAINE
     Dosage: 75 MCG
     Route: 048
  4. OXYBUTYNIN [Concomitant]
     Indication: BLADDER DISORDER
     Route: 065

REACTIONS (2)
  - Sedation [Recovered/Resolved]
  - Chest pain [Recovered/Resolved]
